FAERS Safety Report 7581108-9 (Version None)
Quarter: 2011Q2

REPORT INFORMATION
  Report Type: 
  Country: None (occurrence: None)
  Receive Date: 20110610
  Receipt Date: 20110525
  Transmission Date: 20111010
  Serious: Yes (Other)
  Sender: FDA-Public Use
  Company Number: 2011028843

PATIENT
  Age: 21 Year
  Sex: Female
  Weight: 92 kg

DRUGS (13)
  1. MULTIVITAMIN (ACCOMIN MULTIVITAMIN) [Concomitant]
  2. VITAMIN D [Concomitant]
  3. MIRALAX [Concomitant]
  4. ACETAMINOPHEN [Concomitant]
  5. BACTRIM [Concomitant]
  6. ZYRTEC [Concomitant]
  7. CALCIUM CARBONATE [Concomitant]
  8. OXYBUTYNIN (OXYBUTYNIN) [Concomitant]
  9. GLYCEROL 2.6% [Concomitant]
  10. OCEAN NOSE SPRAY (SODIUM CHLORIDE) [Concomitant]
  11. FLEET ENEMA (PARAFFIN, LIQUID) [Concomitant]
  12. IBUPROFEN [Concomitant]
  13. HIZENTRA [Suspect]
     Indication: IMMUNODEFICIENCY COMMON VARIABLE
     Dosage: 8 G, 4 GM, 20 ML VIAL, 8 GM,WEEKLY OR 4 GM TWICE WEEKLY IN 2 SITES FOR APPROX. 1 HOUR 20 MIN, SUBCUT
     Route: 058
     Dates: start: 20100801

REACTIONS (4)
  - OROPHARYNGEAL PAIN [None]
  - INCREASED UPPER AIRWAY SECRETION [None]
  - UPPER RESPIRATORY TRACT INFECTION [None]
  - SINUSITIS [None]
